FAERS Safety Report 8787627 (Version 3)
Quarter: 2015Q1

REPORT INFORMATION
  Report Type: Report from Study
  Country: US (occurrence: US)
  Receive Date: 20120914
  Receipt Date: 20150330
  Transmission Date: 20150721
  Serious: Yes (Death)
  Sender: FDA-Public Use
  Company Number: US-ROCHE-1126760

PATIENT
  Age: 64 Year
  Sex: Male

DRUGS (31)
  1. LOVENOX [Concomitant]
     Active Substance: ENOXAPARIN SODIUM
     Route: 065
  2. COMPAZINE [Concomitant]
     Active Substance: PROCHLORPERAZINE MALEATE
  3. SENNA [Concomitant]
     Active Substance: SENNA LEAF\SENNOSIDES\SENNOSIDES A AND B
     Route: 065
  4. COUMADIN [Concomitant]
     Active Substance: WARFARIN SODIUM
     Route: 065
  5. PROTONIX (UNITED STATES) [Concomitant]
     Route: 065
  6. AMBIEN [Concomitant]
     Active Substance: ZOLPIDEM TARTRATE
  7. ALOXI [Concomitant]
     Active Substance: PALONOSETRON HYDROCHLORIDE
     Route: 042
  8. DECADRON [Concomitant]
     Active Substance: DEXAMETHASONE
     Route: 042
  9. ZOFRAN [Concomitant]
     Active Substance: ONDANSETRON HYDROCHLORIDE
  10. MIRALAX [Concomitant]
     Active Substance: POLYETHYLENE GLYCOL 3350
  11. AVASTIN [Suspect]
     Active Substance: BEVACIZUMAB
     Route: 065
     Dates: start: 20080619
  12. AVASTIN [Suspect]
     Active Substance: BEVACIZUMAB
     Route: 065
     Dates: start: 20080703
  13. TARCEVA [Suspect]
     Active Substance: ERLOTINIB HYDROCHLORIDE
     Indication: METASTASES TO LIVER
  14. DECADRON [Concomitant]
     Active Substance: DEXAMETHASONE
     Route: 065
  15. PHENERGAN [Concomitant]
     Active Substance: PROMETHAZINE HYDROCHLORIDE
     Route: 042
  16. AVASTIN [Suspect]
     Active Substance: BEVACIZUMAB
     Indication: METASTASES TO LIVER
     Route: 042
     Dates: start: 20080522
  17. DURAGESIC [Concomitant]
     Active Substance: FENTANYL
  18. DILAUDID [Concomitant]
     Active Substance: HYDROMORPHONE HYDROCHLORIDE
     Route: 065
  19. COUMADIN [Concomitant]
     Active Substance: WARFARIN SODIUM
     Route: 065
  20. COLACE [Concomitant]
     Active Substance: DOCUSATE SODIUM
     Route: 065
  21. TARCEVA [Suspect]
     Active Substance: ERLOTINIB HYDROCHLORIDE
     Indication: PANCREATIC CARCINOMA
     Route: 048
  22. GEMZAR [Concomitant]
     Active Substance: GEMCITABINE HYDROCHLORIDE
     Route: 042
  23. BENADRYL [Concomitant]
     Active Substance: DIPHENHYDRAMINE HYDROCHLORIDE
     Route: 042
  24. EMEND [Concomitant]
     Active Substance: APREPITANT
  25. AVASTIN [Suspect]
     Active Substance: BEVACIZUMAB
     Indication: PANCREATIC CARCINOMA
     Route: 065
     Dates: start: 20080605
  26. FENTANYL. [Concomitant]
     Active Substance: FENTANYL
     Route: 065
  27. ZOLOFT [Concomitant]
     Active Substance: SERTRALINE HYDROCHLORIDE
  28. NEOMYCIN [Concomitant]
     Active Substance: NEOMYCIN
  29. COUMADIN [Concomitant]
     Active Substance: WARFARIN SODIUM
     Route: 065
  30. ATIVAN [Concomitant]
     Active Substance: LORAZEPAM
  31. LOPRESSOR [Concomitant]
     Active Substance: METOPROLOL TARTRATE
     Route: 065

REACTIONS (12)
  - Vomiting [Recovered/Resolved]
  - Nausea [Recovered/Resolved]
  - Back pain [Unknown]
  - Rash [Recovered/Resolved]
  - Pain [Unknown]
  - Off label use [Unknown]
  - Death [Fatal]
  - Fatigue [Unknown]
  - Weight decreased [Unknown]
  - Ageusia [Unknown]
  - Hypokalaemia [Unknown]
  - Hyperglycaemia [Unknown]

NARRATIVE: CASE EVENT DATE: 20081011
